FAERS Safety Report 5794623-5 (Version None)
Quarter: 2008Q2

REPORT INFORMATION
  Report Type: 
  Country: None (occurrence: None)
  Receive Date: 20080627
  Receipt Date: 20080627
  Transmission Date: 20081010
  Serious: Yes (Hospitalization)
  Sender: FDA-Public Use
  Company Number: None

PATIENT
  Sex: Female
  Weight: 48.0813 kg

DRUGS (15)
  1. TEGRETOL [Suspect]
     Indication: CONVULSION
     Dosage: 200MG PO TID  PRIOR TO ADMISSION
     Route: 048
  2. FORTEO [Concomitant]
  3. FERGON [Concomitant]
  4. COLACE [Concomitant]
  5. CLARITIN [Concomitant]
  6. PRILOSEC [Concomitant]
  7. FOLIC ACID [Concomitant]
  8. VIT C [Concomitant]
  9. CITRICAL D [Concomitant]
  10. SLO MAG [Concomitant]
  11. HALDOL [Concomitant]
  12. SYNTHROID [Concomitant]
  13. ZANTAC [Concomitant]
  14. MOM [Concomitant]
  15. AMOXICILLIN [Concomitant]

REACTIONS (3)
  - BACK PAIN [None]
  - PANCREATITIS [None]
  - PYREXIA [None]
